FAERS Safety Report 9379740 (Version 1)
Quarter: 2013Q3

REPORT INFORMATION
  Report Type: Spontaneous
  Country: IT (occurrence: IT)
  Receive Date: 20130702
  Receipt Date: 20130702
  Transmission Date: 20140515
  Serious: Yes (Other)
  Sender: FDA-Public Use
  Company Number: IT-PFIZER INC-2013192499

PATIENT
  Age: 75 Year
  Sex: Male
  Weight: 70 kg

DRUGS (2)
  1. LYRICA [Suspect]
     Indication: POLYNEUROPATHY IN MALIGNANT DISEASE
     Dosage: 75 MG, 1X/DAY
     Route: 048
     Dates: start: 20130515, end: 20130602
  2. ENANTONE - SLOW RELEASE [Concomitant]
     Indication: PROSTATE CANCER
     Dosage: UNK
     Route: 058
     Dates: start: 20130208

REACTIONS (4)
  - Lumbar spinal stenosis [Unknown]
  - Pain [Recovered/Resolved]
  - Pain in extremity [Recovered/Resolved]
  - Burning sensation [Unknown]
